FAERS Safety Report 9878109 (Version 3)
Quarter: 2014Q1

REPORT INFORMATION
  Report Type: Spontaneous
  Country: JP (occurrence: JP)
  Receive Date: 20140206
  Receipt Date: 20140214
  Transmission Date: 20141002
  Serious: Yes (Hospitalization)
  Sender: FDA-Public Use
  Company Number: JP-PFIZER INC-2014002671

PATIENT
  Age: 81 Year
  Sex: Male

DRUGS (2)
  1. ANCARON [Suspect]
     Indication: CARDIAC FAILURE CONGESTIVE
     Dosage: 100 MG, TWICE DAILY
     Route: 048
     Dates: end: 20131216
  2. TAKEPRON OD [Suspect]
     Dosage: UNK
     Route: 048

REACTIONS (1)
  - Myelodysplastic syndrome [Not Recovered/Not Resolved]
